FAERS Safety Report 12422353 (Version 1)
Quarter: 2016Q2

REPORT INFORMATION
  Report Type: Spontaneous
  Country: FR (occurrence: FR)
  Receive Date: 20160601
  Receipt Date: 20160601
  Transmission Date: 20160815
  Serious: Yes (Hospitalization)
  Sender: FDA-Public Use
  Company Number: FR-ROCHE-1766600

PATIENT
  Age: 54 Year
  Sex: Female

DRUGS (6)
  1. MABTHERA [Suspect]
     Active Substance: RITUXIMAB
     Indication: MUSCULAR WEAKNESS
     Dosage: INDUCTION THERAPY ?RECEIVED 4 INFUSIONS
     Route: 041
     Dates: start: 20150716, end: 20150730
  2. MESTINON [Concomitant]
     Active Substance: PYRIDOSTIGMINE BROMIDE
  3. MABTHERA [Suspect]
     Active Substance: RITUXIMAB
     Dosage: SECOND MAINTANENCE DOSE
     Route: 042
     Dates: start: 20160412
  4. MABTHERA [Suspect]
     Active Substance: RITUXIMAB
     Dosage: MAINTENANCE INFUSION WAS ADMINISTERED
     Route: 042
     Dates: start: 20150831
  5. LASILIX [Concomitant]
     Active Substance: FUROSEMIDE
  6. CYMBALTA [Concomitant]
     Active Substance: DULOXETINE HYDROCHLORIDE

REACTIONS (2)
  - Pericarditis [Recovering/Resolving]
  - Oedema [Recovering/Resolving]

NARRATIVE: CASE EVENT DATE: 20160413
